FAERS Safety Report 18747098 (Version 2)
Quarter: 2021Q4

REPORT INFORMATION
  Report Type: Spontaneous
  Country: US (occurrence: US)
  Receive Date: 20210115
  Receipt Date: 20211115
  Transmission Date: 20220303
  Serious: Yes (Death, Hospitalization, Other)
  Sender: FDA-Public Use
  Company Number: US-TORRENT-00010658

PATIENT
  Age: 35 Year
  Sex: Female
  Weight: 59 kg

DRUGS (2)
  1. BUPROPION [Suspect]
     Active Substance: BUPROPION
     Indication: Product used for unknown indication
     Dosage: INTENTIONAL INGESTION OF 90 TABS. OF 150 MG EXTENDED RELEASE BUPROPION
  2. METHYLPHENIDATE [Concomitant]
     Active Substance: METHYLPHENIDATE
     Indication: Product used for unknown indication
     Dosage: UNKNOWN AMOUNT

REACTIONS (11)
  - Intentional overdose [Fatal]
  - Status epilepticus [Recovered/Resolved]
  - Somnolence [Unknown]
  - Confusional state [Unknown]
  - Pain [Unknown]
  - Hyperhidrosis [Unknown]
  - Metabolic acidosis [Unknown]
  - Bradycardia [Unknown]
  - Hypotension [Unknown]
  - Cardiac arrest [Unknown]
  - Toxicity to various agents [Unknown]
